FAERS Safety Report 7730292-2 (Version None)
Quarter: 2011Q3

REPORT INFORMATION
  Report Type: 
  Country: None (occurrence: None)
  Receive Date: 20110906
  Receipt Date: 20110823
  Transmission Date: 20111222
  Serious: Yes (Other)
  Sender: FDA-Public Use
  Company Number: US-ELI_LILLY_AND_COMPANY-US201008007712

PATIENT
  Sex: Female

DRUGS (2)
  1. FORTEO [Suspect]
     Indication: OSTEOPOROSIS
     Dosage: 20 UG, DAILY (1/D)
  2. FORTEO [Suspect]
     Dosage: 20 UG, DAILY (1/D)

REACTIONS (6)
  - VISUAL ACUITY REDUCED [None]
  - BLINDNESS TRANSIENT [None]
  - MACULAR DEGENERATION [None]
  - MOTOR DYSFUNCTION [None]
  - EYE HAEMORRHAGE [None]
  - RETINAL DISORDER [None]
